FAERS Safety Report 6689741-3 (Version None)
Quarter: 2010Q2

REPORT INFORMATION
  Report Type: 
  Country: None (occurrence: None)
  Receive Date: 20100421
  Receipt Date: 20100412
  Transmission Date: 20101027
  Serious: Yes (Hospitalization, Other)
  Sender: FDA-Public Use
  Company Number: US-JNJFOC-20081203263

PATIENT
  Sex: Female
  Weight: 108.86 kg

DRUGS (2)
  1. LEVAQUIN [Suspect]
     Indication: STAPHYLOCOCCAL INFECTION
     Route: 048
  2. LEVAQUIN [Suspect]
     Route: 048

REACTIONS (9)
  - ARTHRALGIA [None]
  - DIARRHOEA [None]
  - GASTRITIS [None]
  - HEPATOMEGALY [None]
  - JOINT STIFFNESS [None]
  - NAUSEA [None]
  - PAIN IN EXTREMITY [None]
  - PANCREATIC ENZYMES INCREASED [None]
  - RENAL FUNCTION TEST ABNORMAL [None]
